FAERS Safety Report 5983850-X (Version None)
Quarter: 2008Q4

REPORT INFORMATION
  Report Type: 
  Country: None (occurrence: None)
  Receive Date: 20081208
  Receipt Date: 20081128
  Transmission Date: 20090506
  Serious: Yes (Life-Threatening, Hospitalization)
  Sender: FDA-Public Use
  Company Number: DK-AVENTIS-200820757GDDC

PATIENT
  Age: 7 Year
  Sex: Female

DRUGS (1)
  1. MINIRIN [Suspect]
     Indication: ENURESIS
     Route: 060
     Dates: start: 20080526, end: 20080715

REACTIONS (5)
  - CONVULSION [None]
  - HYPONATRAEMIA [None]
  - HYPOTONIA [None]
  - LOSS OF CONSCIOUSNESS [None]
  - RESPIRATORY ARREST [None]
